FAERS Safety Report 6268442-X (Version None)
Quarter: 2009Q3

REPORT INFORMATION
  Report Type: 
  Country: None (occurrence: None)
  Receive Date: 20090715
  Receipt Date: 20090702
  Transmission Date: 20100115
  Serious: Yes (Disabling)
  Sender: FDA-Public Use
  Company Number: NO-PFIZER INC-2008097831

PATIENT
  Age: 67 Year

DRUGS (6)
  1. CHAMPIX [Suspect]
     Dosage: 1 MG, 2X/DAY
     Route: 048
     Dates: start: 20070329, end: 20070629
  2. LEVOTHYROXINE SODIUM [Concomitant]
     Route: 048
  3. VALSARTAN [Concomitant]
     Route: 048
  4. VALSARTAN [Concomitant]
     Route: 048
  5. ALBYL-E [Concomitant]
     Route: 048
  6. PNEUMOVAX 23 [Concomitant]
     Dosage: UNKNOWN
     Dates: start: 20070920

REACTIONS (2)
  - ANOSMIA [None]
  - DYSGEUSIA [None]
